FAERS Safety Report 8985569 (Version 6)
Quarter: 2013Q1

REPORT INFORMATION
  Report Type: Spontaneous
  Country: PT (occurrence: PT)
  Receive Date: 20121226
  Receipt Date: 20130307
  Transmission Date: 20140127
  Serious: Yes (Other)
  Sender: FDA-Public Use
  Company Number: PT-VERTEX PHARMACEUTICALS INC.-2012-026592

PATIENT
  Sex: Female

DRUGS (4)
  1. INCIVO [Suspect]
     Indication: HEPATITIS C
     Dosage: DOSAGE FORM: TABLET: EVERY 8 HOUR
     Route: 065
     Dates: start: 20121205
  2. RIBAVIRIN [Concomitant]
     Indication: HEPATITIS C
     Dosage: DOSAGE FORM: UNSPECIFIED
     Route: 065
  3. RIBAVIRIN [Concomitant]
     Dosage: DOSAGE FORM: UNSPECIFIED
     Route: 065
  4. PEG-INTERFERON [Concomitant]
     Indication: HEPATITIS C
     Dosage: DOSAGE FORM: UNSPECIFIED
     Route: 065

REACTIONS (3)
  - Neutropenia [Unknown]
  - Toxic skin eruption [Recovered/Resolved]
  - Anaemia [Recovered/Resolved]
